FAERS Safety Report 9588180 (Version 1)
Quarter: 2013Q4

REPORT INFORMATION
  Report Type: Spontaneous
  Country: US (occurrence: US)
  Receive Date: 20131003
  Receipt Date: 20131003
  Transmission Date: 20140711
  Serious: No
  Sender: FDA-Public Use
  Company Number: US-AMGEN-USASP2012062987

PATIENT
  Age: 56 Year
  Sex: Female
  Weight: 58.96 kg

DRUGS (10)
  1. ENBREL [Suspect]
     Indication: PRODUCT USED FOR UNKNOWN INDICATION
     Dosage: 50 MG, QWK
     Route: 058
  2. PREVACID [Concomitant]
     Dosage: 15 MG, UNK
     Route: 048
  3. VITAMIN E                          /00110501/ [Concomitant]
     Dosage: 1000 UNIT, UNK
     Route: 048
  4. ZOCOR [Concomitant]
     Dosage: 10 MG, UNK
     Route: 048
  5. ZYRTEC ALLERGY [Concomitant]
     Dosage: 10 MG, UNK
     Route: 048
  6. CIMZIA [Concomitant]
     Dosage: 200 MG/ML UNK, UNK
     Route: 058
  7. BONIVA [Concomitant]
     Dosage: 150 MG, UNK
     Route: 048
  8. VICODIN [Concomitant]
     Dosage: 5-300MG, UNK
     Route: 048
  9. SIMVASTATIN [Concomitant]
     Dosage: 10 MG, UNK
     Route: 048
  10. CALTRATE + D                       /00944201/ [Concomitant]
     Dosage: 600 MG, UNK
     Route: 048

REACTIONS (1)
  - Rash [Unknown]
